FAERS Safety Report 18184554 (Version 1)
Quarter: 2020Q3

REPORT INFORMATION
  Report Type: Spontaneous
  Country: CN (occurrence: CN)
  Receive Date: 20200824
  Receipt Date: 20200824
  Transmission Date: 20201103
  Serious: Yes (Hospitalization)
  Sender: FDA-Public Use
  Company Number: CN-ROCHE-2662929

PATIENT
  Age: 68 Year
  Sex: Male
  Weight: 56.8 kg

DRUGS (9)
  1. GLUCOSE [Concomitant]
     Active Substance: DEXTROSE
     Indication: RECTAL ADENOCARCINOMA
     Route: 041
     Dates: start: 20200608, end: 20200608
  2. AZASETRON HYDROCHLORIDE;SODIUM CHLORIDE [Concomitant]
     Indication: VOMITING
     Route: 041
     Dates: start: 20200608, end: 20200610
  3. XELODA [Suspect]
     Active Substance: CAPECITABINE
     Indication: RECTAL ADENOCARCINOMA
     Route: 048
     Dates: start: 20200608, end: 20200621
  4. OXALIPLATIN. [Suspect]
     Active Substance: OXALIPLATIN
     Indication: RECTAL ADENOCARCINOMA
     Route: 041
     Dates: start: 20200608, end: 20200608
  5. XELODA [Suspect]
     Active Substance: CAPECITABINE
     Indication: TUMOUR EMBOLISM
  6. AVASTIN [Suspect]
     Active Substance: BEVACIZUMAB
     Indication: RECTAL ADENOCARCINOMA
     Route: 041
     Dates: start: 20200608
  7. SODIUM CHLORIDE IV [Concomitant]
     Active Substance: SODIUM CHLORIDE
     Indication: RECTAL ADENOCARCINOMA
     Route: 041
     Dates: start: 20200608, end: 20200608
  8. FAMOTIDINE. [Concomitant]
     Active Substance: FAMOTIDINE
     Route: 041
     Dates: start: 20200608, end: 20200610
  9. DIISOPROPYLAMINE DICHLOROACETATE [Concomitant]
     Dosage: POWDER INJECTION
     Route: 041
     Dates: start: 20200608, end: 20200610

REACTIONS (1)
  - Myelosuppression [Recovering/Resolving]

NARRATIVE: CASE EVENT DATE: 20200701
